FAERS Safety Report 12761696 (Version 1)
Quarter: 2016Q3

REPORT INFORMATION
  Report Type: Spontaneous
  Country: US (occurrence: US)
  Receive Date: 20160920
  Receipt Date: 20160920
  Transmission Date: 20161109
  Serious: Yes (Other)
  Sender: FDA-Public Use
  Company Number: US-LUPIN PHARMACEUTICALS INC.-2016-04198

PATIENT
  Age: 79 Year
  Sex: Female
  Weight: 62.2 kg

DRUGS (2)
  1. AVAPRO [Concomitant]
     Active Substance: IRBESARTAN
     Indication: HYPERTENSION
     Route: 048
  2. CELECOXIB CAPSULES 200 MG [Suspect]
     Active Substance: CELECOXIB
     Indication: LIMB INJURY
     Route: 065
     Dates: start: 2016, end: 201608

REACTIONS (12)
  - Haematuria [Recovered/Resolved]
  - Abasia [Unknown]
  - Gastrointestinal haemorrhage [Unknown]
  - Muscle spasms [Unknown]
  - Nausea [Unknown]
  - Feeding disorder [Unknown]
  - Haematochezia [Recovered/Resolved]
  - Impaired work ability [Unknown]
  - Malaise [Unknown]
  - Dysuria [Recovered/Resolved]
  - Urge incontinence [Recovered/Resolved]
  - Cough [Recovered/Resolved with Sequelae]

NARRATIVE: CASE EVENT DATE: 201608
